FAERS Safety Report 6993136-2 (Version None)
Quarter: 2010Q3

REPORT INFORMATION
  Report Type: 
  Country: None (occurrence: None)
  Receive Date: 20100917
  Receipt Date: 20100914
  Transmission Date: 20110219
  Serious: Yes (Hospitalization)
  Sender: FDA-Public Use
  Company Number: FR-TEVA-248548ISR

PATIENT
  Sex: Male

DRUGS (11)
  1. VINCRISTINE [Suspect]
     Indication: ACUTE LYMPHOCYTIC LEUKAEMIA RECURRENT
     Dosage: 1.5MG/ COURSE
     Route: 042
     Dates: start: 20080115, end: 20080129
  2. PEGASPARGASE [Suspect]
     Indication: ACUTE LYMPHOCYTIC LEUKAEMIA RECURRENT
     Dosage: 2500UI/COURSE
     Route: 030
     Dates: start: 20080115, end: 20080201
  3. CYTARABINE [Suspect]
     Indication: ACUTE LYMPHOCYTIC LEUKAEMIA RECURRENT
     Dosage: 12G/COURSE
     Route: 042
     Dates: start: 20080115, end: 20080129
  4. DEXAMETHASONE [Suspect]
     Indication: ACUTE LYMPHOCYTIC LEUKAEMIA RECURRENT
     Route: 048
     Dates: start: 20080115, end: 20080201
  5. CARBAMAZEPINE [Concomitant]
     Indication: PARTIAL SEIZURES
     Route: 048
  6. LEVETIRACETAM [Concomitant]
     Indication: PARTIAL SEIZURES
     Route: 048
  7. HALOPERIDOL [Concomitant]
     Dosage: 20 DROPS
     Route: 048
  8. PIPAMPERONE HYDROCHLORIDE [Concomitant]
     Dosage: 10 DROPS
     Route: 048
  9. METHOTREXATE [Concomitant]
     Route: 037
     Dates: start: 20080115
  10. METHOTREXATE [Concomitant]
     Route: 042
     Dates: start: 20080115
  11. PREDNISOLONE [Concomitant]
     Route: 037
     Dates: start: 20080115

REACTIONS (1)
  - TRANSIENT ISCHAEMIC ATTACK [None]
